FAERS Safety Report 6876324-5 (Version None)
Quarter: 2010Q2

REPORT INFORMATION
  Report Type: 
  Country: None (occurrence: None)
  Receive Date: 20100616
  Receipt Date: 20100413
  Transmission Date: 20101027
  Serious: No
  Sender: FDA-Public Use
  Company Number: DSA_42933_2010

PATIENT
  Sex: Male

DRUGS (7)
  1. XENAZINE [Suspect]
     Indication: HUNTINGTON'S CHOREA
     Dosage: (12.5 MG BID ORAL)
     Route: 048
     Dates: start: 20100116
  2. CLONAZEPAM [Concomitant]
  3. GABAPENTIN [Concomitant]
  4. DEPAKOTE [Concomitant]
  5. PRIMIDONE [Concomitant]
  6. WELLBUTRIN XL [Concomitant]
  7. LISINOPRIL [Concomitant]

REACTIONS (3)
  - FATIGUE [None]
  - SOMNOLENCE [None]
  - WEIGHT INCREASED [None]
